FAERS Safety Report 5747010-X (Version None)
Quarter: 2008Q2

REPORT INFORMATION
  Report Type: 
  Country: None (occurrence: None)
  Receive Date: 20080522
  Receipt Date: 20080513
  Transmission Date: 20081010
  Serious: Yes (Hospitalization)
  Sender: FDA-Public Use
  Company Number: US-AMGEN-QUU275504

PATIENT
  Sex: Female
  Weight: 136.2 kg

DRUGS (3)
  1. ENBREL [Suspect]
     Indication: RHEUMATOID ARTHRITIS
     Route: 058
     Dates: start: 20040924
  2. LYRICA [Concomitant]
  3. NAPROSYN [Concomitant]

REACTIONS (5)
  - BURSITIS [None]
  - LUMBAR RADICULOPATHY [None]
  - OEDEMA [None]
  - PAIN [None]
  - RESPIRATORY TRACT INFECTION [None]
